FAERS Safety Report 16782876 (Version 1)
Quarter: 2019Q3

REPORT INFORMATION
  Report Type: Spontaneous
  Country: US (occurrence: US)
  Receive Date: 20190906
  Receipt Date: 20190906
  Transmission Date: 20191005
  Serious: Yes (Hospitalization)
  Sender: FDA-Public Use
  Company Number: US-PRINSTON PHARMACEUTICAL INC.-2019PRN00772

PATIENT
  Sex: Male
  Weight: 81.63 kg

DRUGS (6)
  1. OMEPRAZOLE. [Concomitant]
     Active Substance: OMEPRAZOLE
  2. TYLENOL [Concomitant]
     Active Substance: ACETAMINOPHEN
  3. LISINOPRIL. [Suspect]
     Active Substance: LISINOPRIL
     Dosage: 1 TABLETS
     Route: 048
     Dates: start: 2018, end: 2018
  4. 8 DIFFERENT BP PILLS (UNSPECIFIED) [Suspect]
     Active Substance: UNSPECIFIED INGREDIENT
     Indication: HYPERTENSION
     Dosage: UNK
  5. BABY ASPIRIN [Concomitant]
     Active Substance: ASPIRIN
  6. LISINOPRIL. [Suspect]
     Active Substance: LISINOPRIL
     Indication: HYPERTENSION
     Dosage: 1 TABLETS
     Route: 048

REACTIONS (3)
  - Blood pressure increased [Recovered/Resolved]
  - Allergic reaction to excipient [Recovered/Resolved]
  - Drug ineffective [Recovered/Resolved]
